FAERS Safety Report 19728461 (Version 3)
Quarter: 2021Q3

REPORT INFORMATION
  Report Type: Spontaneous
  Country: JP (occurrence: JP)
  Receive Date: 20210820
  Receipt Date: 20210827
  Transmission Date: 20211014
  Serious: Yes (Other)
  Sender: FDA-Public Use
  Company Number: JP-FRESENIUS KABI-FK202108717

PATIENT
  Age: 2 Year
  Sex: Female
  Weight: 12.2 kg

DRUGS (6)
  1. SEVOFLURANE. [Concomitant]
     Active Substance: SEVOFLURANE
     Indication: INDUCTION OF ANAESTHESIA
     Dosage: UNK
  2. NITROUS OXIDE. [Concomitant]
     Active Substance: NITROUS OXIDE
     Indication: INDUCTION OF ANAESTHESIA
  3. REMIFENTANIL [Suspect]
     Active Substance: REMIFENTANIL
     Indication: MAINTENANCE OF ANAESTHESIA
     Dosage: RATE OF REMIFENTANIL INFUSION WAS INCREASED TO 0.5 UG/KG/MIN BEFORE THE SURGERY
     Route: 065
  4. ROCURONIUM BROMIDE. [Concomitant]
     Active Substance: ROCURONIUM BROMIDE
     Indication: PRODUCT USED FOR UNKNOWN INDICATION
     Dosage: UNK
     Route: 040
  5. PROPOFOL (MANUFACTURER UNKNOWN) [Suspect]
     Active Substance: PROPOFOL
     Indication: MAINTENANCE OF ANAESTHESIA
     Dosage: 10 MG/KG/H
     Route: 065
  6. SUCCINYLCHOLINE CHLORIDE. [Concomitant]
     Active Substance: SUCCINYLCHOLINE CHLORIDE
     Indication: ENDOTRACHEAL INTUBATION
     Dosage: UNK
     Route: 042

REACTIONS (3)
  - Electrocardiogram ST segment elevation [Recovered/Resolved]
  - Atrioventricular block [Recovered/Resolved]
  - Arteriospasm coronary [Recovered/Resolved]
